FAERS Safety Report 19770588 (Version 1)
Quarter: 2021Q3

REPORT INFORMATION
  Report Type: Spontaneous
  Country: SE (occurrence: SE)
  Receive Date: 20210901
  Receipt Date: 20210901
  Transmission Date: 20211014
  Serious: Yes (Other)
  Sender: FDA-Public Use
  Company Number: SE-ROCHE-2900336

PATIENT
  Sex: Female

DRUGS (1)
  1. MABTHERA [Suspect]
     Active Substance: RITUXIMAB
     Indication: MULTIPLE SCLEROSIS
     Route: 065

REACTIONS (6)
  - Intestinal villi atrophy [Unknown]
  - Malabsorption [Unknown]
  - Lymphocytosis [Unknown]
  - Off label use [Unknown]
  - Small intestine ulcer [Unknown]
  - Gastrointestinal disorder [Unknown]
